FAERS Safety Report 4467028-7 (Version None)
Quarter: 2004Q4

REPORT INFORMATION
  Report Type: 
  Country: None (occurrence: None)
  Receive Date: 20041001
  Receipt Date: 20041001
  Transmission Date: 20050328
  Serious: Yes (Hospitalization)
  Sender: FDA-Public Use
  Company Number: None

PATIENT
  Age: 57 Year
  Sex: Female
  Weight: 74.2 kg

DRUGS (11)
  1. HERCEPTIN [Suspect]
  2. TRASTUZUMAB [Concomitant]
  3. LORAZEPAM [Concomitant]
  4. CLONAZEPAM [Concomitant]
  5. NEUPOGEN [Concomitant]
  6. ZOLOFT [Concomitant]
  7. PRILOSEC [Concomitant]
  8. VIOXX [Concomitant]
  9. HYDROCHLOROTHIAZIDE [Concomitant]
  10. FLOVENT [Concomitant]
  11. PHENERAN [Concomitant]

REACTIONS (7)
  - CHILLS [None]
  - DYSPNOEA [None]
  - GASTROINTESTINAL HAEMORRHAGE [None]
  - HAEMOGLOBIN DECREASED [None]
  - NAUSEA [None]
  - PAIN [None]
  - PLATELET COUNT DECREASED [None]
